FAERS Safety Report 4861440-X (Version None)
Quarter: 2005Q4

REPORT INFORMATION
  Report Type: 
  Country: None (occurrence: None)
  Receive Date: 20051220
  Receipt Date: 20051215
  Transmission Date: 20060501
  Serious: Yes (Hospitalization)
  Sender: FDA-Public Use
  Company Number: DE-JNJFOC-20051101056

PATIENT
  Sex: Female

DRUGS (2)
  1. DURAGESIC-100 [Suspect]
     Route: 062
  2. DURAGESIC-100 [Suspect]
     Indication: PAIN
     Route: 062

REACTIONS (5)
  - ABNORMAL BEHAVIOUR [None]
  - DELIRIUM [None]
  - DRUG EFFECT INCREASED [None]
  - INTENTIONAL DRUG MISUSE [None]
  - POOR QUALITY DRUG ADMINISTERED [None]
